FAERS Safety Report 16726252 (Version 2)
Quarter: 2019Q3

REPORT INFORMATION
  Report Type: Spontaneous
  Country: CN (occurrence: CN)
  Receive Date: 20190821
  Receipt Date: 20190822
  Transmission Date: 20191005
  Serious: Yes (Death)
  Sender: FDA-Public Use
  Company Number: CN-ASTRAZENECA-2019SF18867

PATIENT
  Age: 66 Year
  Sex: Female

DRUGS (6)
  1. BRILINTA [Suspect]
     Active Substance: TICAGRELOR
     Indication: ACUTE CORONARY SYNDROME
     Dosage: 180.0MG ONCE/SINGLE ADMINISTRATION
     Route: 048
     Dates: start: 20190704
  2. BRILINTA [Suspect]
     Active Substance: TICAGRELOR
     Indication: ACUTE CORONARY SYNDROME
     Dosage: ONCE/SINGLE ADMINISTRATION
     Route: 048
  3. ATORVASTATIN [Concomitant]
     Active Substance: ATORVASTATIN
     Indication: LIPIDS ABNORMAL
     Dosage: NORMAL DOSE OF 20MG IN HOSPITAL
     Route: 048
     Dates: start: 20190704, end: 20190710
  4. ATORVASTATIN [Concomitant]
     Active Substance: ATORVASTATIN
     Indication: PLAQUE SHIFT
     Dosage: NORMAL DOSE OF 20MG IN HOSPITAL
     Route: 048
     Dates: start: 20190704, end: 20190710
  5. ASPIRIN. [Concomitant]
     Active Substance: ASPIRIN
     Indication: ANTIPLATELET THERAPY
     Route: 048
     Dates: start: 20190704, end: 20190710
  6. ENOXAPARINE [Concomitant]
     Active Substance: ENOXAPARIN
     Indication: ANTICOAGULANT THERAPY
     Dates: start: 20190709, end: 20190710

REACTIONS (1)
  - Cerebral haemorrhage [Fatal]

NARRATIVE: CASE EVENT DATE: 20190709
